FAERS Safety Report 6276830-0 (Version None)
Quarter: 2009Q3

REPORT INFORMATION
  Report Type: 
  Country: None (occurrence: None)
  Receive Date: 20090722
  Receipt Date: 20080911
  Transmission Date: 20100115
  Serious: No
  Sender: FDA-Public Use
  Company Number: US-BRISTOL-MYERS SQUIBB COMPANY-14332530

PATIENT
  Sex: Male

DRUGS (3)
  1. COUMADIN [Suspect]
  2. TYLENOL (CAPLET) [Suspect]
     Indication: NASOPHARYNGITIS
  3. TYLENOL (CAPLET) [Suspect]
     Indication: PYREXIA

REACTIONS (1)
  - PROTHROMBIN TIME PROLONGED [None]
